FAERS Safety Report 10475393 (Version 1)
Quarter: 2014Q3

REPORT INFORMATION
  Report Type: Spontaneous
  Country: US (occurrence: None)
  Receive Date: 20140924
  Receipt Date: 20140924
  Transmission Date: 20150326
  Serious: Yes (Hospitalization)
  Sender: FDA-Public Use
  Company Number: None

PATIENT
  Age: 66 Year
  Sex: Male
  Weight: 78 kg

DRUGS (15)
  1. SOFOSBUVIR [Suspect]
     Active Substance: SOFOSBUVIR
     Indication: HEPATITIS C
     Route: 048
     Dates: start: 20140423
  2. LASIX [Concomitant]
     Active Substance: FUROSEMIDE
  3. DILAUDID [Concomitant]
     Active Substance: HYDROMORPHONE HYDROCHLORIDE
  4. LACTULOSE. [Concomitant]
     Active Substance: LACTULOSE
  5. VITAMIN C [Concomitant]
     Active Substance: ASCORBIC ACID
  6. ZINC SULFATE [Concomitant]
     Active Substance: ZINC SULFATE\ZINC SULFATE ANHYDROUS
  7. ATENOLOL. [Concomitant]
     Active Substance: ATENOLOL
  8. PROCRIT [Concomitant]
     Active Substance: ERYTHROPOIETIN
  9. RIBAVIRIN. [Suspect]
     Active Substance: RIBAVIRIN
     Indication: HEPATITIS C
     Route: 048
     Dates: start: 20140423
  10. WELLBUTRIN [Concomitant]
     Active Substance: BUPROPION HYDROCHLORIDE
  11. HYDRODIURIL [Concomitant]
     Active Substance: HYDROCHLOROTHIAZIDE
  12. FLOMAX [Concomitant]
     Active Substance: TAMSULOSIN HYDROCHLORIDE
  13. ACTIGALL [Concomitant]
     Active Substance: URSODIOL
  14. GLUCOSAMINE [Concomitant]
     Active Substance: GLUCOSAMINE
  15. SPIRONOLACTONE. [Concomitant]
     Active Substance: SPIRONOLACTONE

REACTIONS (21)
  - Melaena [None]
  - Septic shock [None]
  - Confusional state [None]
  - Pulmonary oedema [None]
  - Asthenia [None]
  - Diarrhoea [None]
  - Hypercapnia [None]
  - Pneumonia [None]
  - Corynebacterium test positive [None]
  - Fluid overload [None]
  - Gastric varices [None]
  - Abdominal pain [None]
  - Atrial fibrillation [None]
  - Upper gastrointestinal haemorrhage [None]
  - Respiratory alkalosis [None]
  - Acute respiratory distress syndrome [None]
  - Lethargy [None]
  - Pyrexia [None]
  - Escherichia bacteraemia [None]
  - Diverticulum [None]
  - Lung infection pseudomonal [None]

NARRATIVE: CASE EVENT DATE: 20140707
